FAERS Safety Report 5788490-3 (Version None)
Quarter: 2008Q2

REPORT INFORMATION
  Report Type: 
  Country: None (occurrence: None)
  Receive Date: 20080626
  Receipt Date: 20080620
  Transmission Date: 20081010
  Serious: Yes (Disabling)
  Sender: FDA-Public Use
  Company Number: GB-RANBAXY-2008RR-16029

PATIENT

DRUGS (6)
  1. IBUPROFEN [Suspect]
     Dosage: 400 MG, TID
     Dates: start: 20080401
  2. CLOPIDOGREL [Suspect]
     Indication: ATRIAL FIBRILLATION
     Dosage: 75 MG, UNK
     Route: 048
     Dates: start: 20080317, end: 20080417
  3. ENTACAPONE [Concomitant]
     Indication: PARKINSON'S DISEASE
     Dosage: 200 MG, QID
     Route: 048
  4. MADOPAR [Concomitant]
     Indication: PARKINSON'S DISEASE
     Dosage: 62.5 MG, QD
     Route: 048
  5. MADOPAR CR [Concomitant]
     Indication: PARKINSON'S DISEASE
     Dosage: 1 DF, QID
     Route: 048
  6. ROPINIROLE [Concomitant]
     Indication: PARKINSON'S DISEASE
     Dosage: 24 MG, QD
     Route: 048

REACTIONS (3)
  - CONFUSIONAL STATE [None]
  - DRUG INTERACTION [None]
  - HALLUCINATION, VISUAL [None]
